FAERS Safety Report 4298618-2 (Version None)
Quarter: 2004Q1

REPORT INFORMATION
  Report Type: 
  Country: None (occurrence: None)
  Receive Date: 20040218
  Receipt Date: 20030625
  Transmission Date: 20041129
  Serious: No
  Sender: FDA-Public Use
  Company Number: US-GLAXOSMITHKLINE-A0413992A

PATIENT
  Age: 30 Year
  Sex: Female

DRUGS (5)
  1. PAXIL [Suspect]
     Indication: DEPRESSION
     Route: 048
  2. NEXIUM [Concomitant]
  3. ZYRTEC [Concomitant]
  4. REGLAN [Concomitant]
  5. ORAL CONTRACEPTION [Concomitant]

REACTIONS (1)
  - FEAR [None]
